FAERS Safety Report 12575710 (Version 1)
Quarter: 2016Q3

REPORT INFORMATION
  Report Type: Spontaneous
  Country: US (occurrence: US)
  Receive Date: 20160720
  Receipt Date: 20160720
  Transmission Date: 20161109
  Serious: Yes (Other)
  Sender: FDA-Public Use
  Company Number: US-JNJFOC-20160705737

PATIENT
  Sex: Female
  Weight: 90.72 kg

DRUGS (4)
  1. LEVAQUIN [Suspect]
     Active Substance: LEVOFLOXACIN
     Indication: POSTOPERATIVE FEVER
     Dosage: FOR 28 DAYS
     Route: 042
  2. LEVAQUIN [Suspect]
     Active Substance: LEVOFLOXACIN
     Indication: POSTOPERATIVE FEVER
     Dosage: FOR 28 DAYS
     Route: 048
     Dates: end: 2005
  3. LEVAQUIN [Suspect]
     Active Substance: LEVOFLOXACIN
     Indication: POSTOPERATIVE FEVER
     Dosage: FOR 10 DAYS
     Route: 042
     Dates: start: 1997
  4. MORPHINE [Concomitant]
     Active Substance: MORPHINE
     Route: 065

REACTIONS (5)
  - Arthropathy [Unknown]
  - Meniscus injury [Unknown]
  - Trigger finger [Unknown]
  - Adverse event [Unknown]
  - Gait disturbance [Unknown]
